FAERS Safety Report 17623078 (Version 2)
Quarter: 2020Q3

REPORT INFORMATION
  Report Type: Report from Study
  Country: US (occurrence: US)
  Receive Date: 20200403
  Receipt Date: 20200701
  Transmission Date: 20201102
  Serious: Yes (Death, Other)
  Sender: FDA-Public Use
  Company Number: US-ASTELLAS-2020US010958

PATIENT
  Age: 84 Year
  Sex: Male

DRUGS (3)
  1. ATORVASTATIN [Concomitant]
     Active Substance: ATORVASTATIN
     Indication: PRODUCT USED FOR UNKNOWN INDICATION
     Dosage: UNK UNK, UNKNOWN FREQ.
     Route: 065
  2. ENZALUTAMIDE [Suspect]
     Active Substance: ENZALUTAMIDE
     Indication: PRODUCT USED FOR UNKNOWN INDICATION
     Dosage: UNK, UNKNOWN FREQ.
     Route: 065
  3. ENZALUTAMIDE [Suspect]
     Active Substance: ENZALUTAMIDE
     Dosage: 1 DF, EVERY 4 HOURS
     Route: 065

REACTIONS (8)
  - Malignant neoplasm progression [Unknown]
  - Pharyngeal inflammation [Recovered/Resolved]
  - Eye inflammation [Recovered/Resolved]
  - Choking [Recovered/Resolved]
  - Death [Fatal]
  - Pain in extremity [Unknown]
  - Inappropriate schedule of product administration [Unknown]
  - Gout [Unknown]

NARRATIVE: CASE EVENT DATE: 20200320
